FAERS Safety Report 24130296 (Version 2)
Quarter: 2024Q3

REPORT INFORMATION
  Report Type: Spontaneous
  Country: JP (occurrence: JP)
  Receive Date: 20240724
  Receipt Date: 20240917
  Transmission Date: 20241016
  Serious: Yes (Hospitalization, Other)
  Sender: ABBVIE
  Company Number: JP-ABBVIE-5849657

PATIENT
  Age: 64 Year
  Sex: Female
  Weight: 90 kg

DRUGS (3)
  1. SKYRIZI [Suspect]
     Active Substance: RISANKIZUMAB-RZAA
     Indication: Psoriasis
     Dosage: FORM STRENGTH: 150 MG
     Route: 058
     Dates: start: 20220803, end: 20240422
  2. BILASTINE [Concomitant]
     Active Substance: BILASTINE
     Indication: Urticaria
     Dosage: 20 MILLIGRAM
     Route: 048
  3. Maxacalcitol and betamethasone butyrate propionate [Concomitant]
     Indication: Psoriasis
     Dosage: 0.67 GRAM
     Route: 061

REACTIONS (4)
  - Ovarian cancer recurrent [Not Recovered/Not Resolved]
  - Eczema [Unknown]
  - Metastases to peritoneum [Unknown]
  - Nodule [Unknown]

NARRATIVE: CASE EVENT DATE: 20240625
